FAERS Safety Report 10061360 (Version 3)
Quarter: 2014Q2

REPORT INFORMATION
  Report Type: Spontaneous
  Country: NL (occurrence: NL)
  Receive Date: 20140407
  Receipt Date: 20140423
  Transmission Date: 20141212
  Serious: Yes (Death)
  Sender: FDA-Public Use
  Company Number: NL-ROCHE-1372044

PATIENT
  Age: 65 Year
  Sex: Male
  Weight: 66 kg

DRUGS (3)
  1. XELODA [Suspect]
     Indication: COLON CANCER
     Route: 048
     Dates: start: 20140127, end: 20140210
  2. OXALIPLATIN [Interacting]
     Indication: COLON CANCER
     Route: 042
     Dates: start: 20140127
  3. FRAGMIN [Concomitant]

REACTIONS (6)
  - Colitis [Fatal]
  - Embolism [Fatal]
  - Sepsis [Fatal]
  - Gastrointestinal perforation [Fatal]
  - Intestinal ischaemia [Fatal]
  - Drug interaction [Fatal]
